FAERS Safety Report 9437260 (Version 1)
Quarter: 2013Q3

REPORT INFORMATION
  Report Type: Report from Study
  Country: NL (occurrence: NL)
  Receive Date: 20130802
  Receipt Date: 20130802
  Transmission Date: 20140515
  Serious: Yes (Death)
  Sender: FDA-Public Use
  Company Number: PHHY2013NL082498

PATIENT
  Sex: Male

DRUGS (1)
  1. TOBI [Suspect]
     Indication: ASTHMA
     Dosage: UNK

REACTIONS (1)
  - Death [Fatal]
